FAERS Safety Report 5170778-0 (Version None)
Quarter: 2006Q4

REPORT INFORMATION
  Report Type: 
  Country: None (occurrence: None)
  Receive Date: 20060919
  Receipt Date: 20060517
  Transmission Date: 20070319
  Serious: No
  Sender: FDA-Public Use
  Company Number: BDI-008265

PATIENT
  Sex: Female

DRUGS (3)
  1. MULTIHANCE [Suspect]
     Indication: NUCLEAR MAGNETIC RESONANCE IMAGING
     Dosage: 40 MGL ONCE IV
     Route: 042
     Dates: start: 20060510, end: 20060510
  2. MULTIHANCE [Suspect]
     Indication: NUCLEAR MAGNETIC RESONANCE IMAGING ABDOMINAL
     Dosage: 40 MGL ONCE IV
     Route: 042
     Dates: start: 20060510, end: 20060510
  3. MULTIHANCE [Suspect]
     Indication: NUCLEAR MAGNETIC RESONANCE IMAGING THORACIC
     Dosage: 40 MGL ONCE IV
     Route: 042
     Dates: start: 20060510, end: 20060510

REACTIONS (1)
  - SNEEZING [None]
